FAERS Safety Report 23946569 (Version 2)
Quarter: 2024Q3

REPORT INFORMATION
  Report Type: Spontaneous
  Country: US (occurrence: US)
  Receive Date: 20240606
  Receipt Date: 20240722
  Transmission Date: 20241017
  Serious: No
  Sender: DR REDDYS
  Company Number: US-E2BLSMVVAL-SPO/USA/24/0007957

PATIENT
  Age: 2 Year
  Sex: Female
  Weight: 13.2 kg

DRUGS (1)
  1. JAVYGTOR [Suspect]
     Active Substance: SAPROPTERIN DIHYDROCHLORIDE
     Indication: Phenylketonuria
     Dosage: 3 TABLETS BY MOUTH
     Route: 048

REACTIONS (2)
  - Drug ineffective [Unknown]
  - Product taste abnormal [Unknown]
